FAERS Safety Report 4834701-8 (Version None)
Quarter: 2005Q4

REPORT INFORMATION
  Report Type: 
  Country: None (occurrence: None)
  Receive Date: 20051122
  Receipt Date: 20051117
  Transmission Date: 20060501
  Serious: Yes (Other)
  Sender: FDA-Public Use
  Company Number: 001#1#2005-00295

PATIENT

DRUGS (2)
  1. ATMADISC [Suspect]
     Dosage: 300UG UNKNOWN
     Route: 055
  2. INHALATIONAL STEROIDS [Concomitant]
     Route: 055

REACTIONS (1)
  - PSORIASIS [None]
